FAERS Safety Report 5060201-9 (Version None)
Quarter: 2006Q3

REPORT INFORMATION
  Report Type: 
  Country: None (occurrence: None)
  Receive Date: 20060720
  Receipt Date: 20060704
  Transmission Date: 20061208
  Serious: Yes (Hospitalization)
  Sender: FDA-Public Use
  Company Number: 2006087478

PATIENT
  Age: 72 Year
  Sex: Female

DRUGS (9)
  1. NEURONTIN [Suspect]
     Indication: NEURALGIA
     Dosage: 200 MG (100 MG, 2 IN 1 D)
     Dates: start: 20040701, end: 20040801
  2. LYRICA [Suspect]
     Indication: NEURALGIA
     Dosage: 150 MG (75 MG, 2 IN 1 D), ORAL
     Route: 048
     Dates: start: 20050101
  3. ANALGESICS (ANALGESICS) [Suspect]
     Indication: NEURALGIA
  4. TIAGABINE HCL [Suspect]
     Indication: PAIN
     Dosage: 5 MG
     Dates: start: 20040101
  5. DRUG, UNSPECIFIED (DRUG, UNSPECIFIED) [Suspect]
     Dates: start: 20050701
  6. ALL OTHER THERAPEUTIC PRODUCTS (ALL OTHER THERAPEUTIC PRODUCTS) [Suspect]
     Dates: start: 20050701
  7. DIPYRONE TAB [Concomitant]
  8. METOCLOPRAMIDE [Concomitant]
  9. ROPIVACAINE (ROPIVACAINE) [Concomitant]

REACTIONS (7)
  - DIZZINESS [None]
  - FATIGUE [None]
  - GAIT DISTURBANCE [None]
  - NAUSEA [None]
  - PAIN [None]
  - REFUSAL OF TREATMENT BY RELATIVE [None]
  - THERAPY NON-RESPONDER [None]
